FAERS Safety Report 7565435-7 (Version None)
Quarter: 2011Q2

REPORT INFORMATION
  Report Type: 
  Country: None (occurrence: None)
  Receive Date: 20110623
  Receipt Date: 20110614
  Transmission Date: 20111010
  Serious: No
  Sender: FDA-Public Use
  Company Number: US-BIOGENIDEC-2011BI022048

PATIENT
  Sex: Female

DRUGS (1)
  1. TYSABRI [Suspect]
     Indication: MULTIPLE SCLEROSIS
     Route: 042
     Dates: start: 20090529

REACTIONS (6)
  - PAIN IN EXTREMITY [None]
  - STRESS [None]
  - MULTIPLE SCLEROSIS RELAPSE [None]
  - LOSS OF CONTROL OF LEGS [None]
  - FATIGUE [None]
  - DRUG EFFECT DECREASED [None]
